FAERS Safety Report 15221811 (Version 1)
Quarter: 2018Q3

REPORT INFORMATION
  Report Type: Spontaneous
  Country: US (occurrence: US)
  Receive Date: 20180731
  Receipt Date: 20180731
  Transmission Date: 20181010
  Serious: Yes (Other)
  Sender: FDA-Public Use
  Company Number: US-MYLANLABS-2018M1057167

PATIENT
  Age: 44 Year
  Sex: Male

DRUGS (4)
  1. IDARUBICIN [Suspect]
     Active Substance: IDARUBICIN
     Indication: ACUTE MYELOID LEUKAEMIA
     Dosage: INDUCTION DOSE; CHEMOTHERAPY WITH CYTARABINE/IDARUBICIN 7+3
     Route: 065
  2. CYTARABINE. [Suspect]
     Active Substance: CYTARABINE
     Indication: ACUTE MYELOID LEUKAEMIA
     Dosage: INDUCTION DOSE; CHEMOTHERAPY WITH CYTARABINE/IDARUBICIN 7+3
     Route: 065
  3. CYTARABINE. [Suspect]
     Active Substance: CYTARABINE
     Dosage: REINDUCTION WITH HIGH DOSE
  4. IDARUBICIN [Suspect]
     Active Substance: IDARUBICIN
     Dosage: REINDUCTION WITH HIGH DOSE
     Route: 065

REACTIONS (1)
  - Nephrogenic diabetes insipidus [Recovered/Resolved]
